FAERS Safety Report 20633597 (Version 1)
Quarter: 2022Q1

REPORT INFORMATION
  Report Type: Spontaneous
  Country: BR (occurrence: BR)
  Receive Date: 20220324
  Receipt Date: 20220324
  Transmission Date: 20220424
  Serious: Yes (Other)
  Sender: FDA-Public Use
  Company Number: BR-TAKEDA-2019TUS052315

PATIENT
  Age: 46 Year
  Sex: Male
  Weight: 71 kg

DRUGS (5)
  1. DEXILANT [Suspect]
     Active Substance: DEXLANSOPRAZOLE
     Indication: Gastritis
     Dosage: 60 MILLIGRAM, QD
     Route: 048
     Dates: start: 20190905, end: 20190908
  2. DEXILANT [Suspect]
     Active Substance: DEXLANSOPRAZOLE
     Indication: Hyperchlorhydria
     Dosage: 60 MILLIGRAM, QD
     Route: 048
     Dates: start: 20190909
  3. DEXILANT [Suspect]
     Active Substance: DEXLANSOPRAZOLE
     Indication: Gastrooesophageal reflux disease
     Dosage: 60 MILLIGRAM, QD
     Route: 048
     Dates: start: 2020
  4. BROMOPRIDE [Suspect]
     Active Substance: BROMOPRIDE
     Indication: Vomiting
     Dosage: 10 MILLIGRAM, QD
     Route: 048
     Dates: start: 20190905
  5. ESCITALOPRAM OXALATE [Concomitant]
     Active Substance: ESCITALOPRAM OXALATE
     Indication: Anxiety
     Dosage: 20 MILLIGRAM, QD
     Route: 048

REACTIONS (8)
  - Kidney enlargement [Unknown]
  - Nephrolithiasis [Unknown]
  - Off label use [Unknown]
  - Sleep disorder [Not Recovered/Not Resolved]
  - Therapy interrupted [Unknown]
  - Renal pain [Unknown]
  - Dyspepsia [Recovered/Resolved]
  - Abdominal pain upper [Not Recovered/Not Resolved]

NARRATIVE: CASE EVENT DATE: 20190901
